FAERS Safety Report 9078979 (Version 3)
Quarter: 2013Q1

REPORT INFORMATION
  Report Type: Spontaneous
  Country: JP (occurrence: JP)
  Receive Date: 20130215
  Receipt Date: 20130227
  Transmission Date: 20140127
  Serious: Yes (Death, Life-Threatening, Disabling, Other)
  Sender: FDA-Public Use
  Company Number: JP-OTSUKA-JP-2013-10355

PATIENT
  Age: 82 Year
  Sex: Female
  Weight: 39 kg

DRUGS (5)
  1. SAMSCA [Suspect]
     Indication: CARDIAC FAILURE
     Dosage: 7.5 MG MILLIGRAM(S), QD
     Route: 048
     Dates: start: 20130122, end: 20130130
  2. LASIX [Concomitant]
     Indication: CARDIAC FAILURE
     Dosage: 60 MG MILLIGRAM(S), BID
     Route: 048
     Dates: start: 20080208, end: 20130203
  3. ALDACTONE A [Concomitant]
     Indication: CARDIAC FAILURE
     Dosage: 25 MG MILLIGRAM(S), QD
     Route: 048
     Dates: start: 20080208, end: 20130204
  4. LASIX [Concomitant]
     Indication: CARDIAC FAILURE
     Dosage: 20 MG MILLIGRAM(S), QD
     Route: 042
     Dates: start: 20130202, end: 20130202
  5. ARGAMATE [Concomitant]
     Indication: MINERAL SUPPLEMENTATION
     Dosage: 25 G GRAM(S), TID
     Route: 048
     Dates: start: 20130204, end: 20130205

REACTIONS (9)
  - Cardiac failure [Fatal]
  - Renal impairment [Unknown]
  - Aspartate aminotransferase increased [Unknown]
  - Alanine aminotransferase increased [Unknown]
  - Decreased appetite [Unknown]
  - Blood potassium increased [Unknown]
  - Blood urea increased [Unknown]
  - Blood creatinine increased [Unknown]
  - Dehydration [Unknown]
